FAERS Safety Report 9749484 (Version 1)
Quarter: 2013Q4

REPORT INFORMATION
  Report Type: Spontaneous
  Country: FR (occurrence: FR)
  Receive Date: 20131212
  Receipt Date: 20131212
  Transmission Date: 20140711
  Serious: Yes (Hospitalization, Other)
  Sender: FDA-Public Use
  Company Number: FR-PFIZER INC-2013351760

PATIENT
  Age: 79 Year
  Sex: Female

DRUGS (6)
  1. LYRICA [Suspect]
     Indication: NECK PAIN
     Dosage: 150 MG, SINGLE
     Route: 048
     Dates: start: 20131022, end: 20131022
  2. CLOPIDOGREL [Concomitant]
  3. ATORVASTATIN [Concomitant]
  4. PERINDOPRIL [Concomitant]
  5. CELIPROLOL [Concomitant]
  6. ASPEGIC [Concomitant]

REACTIONS (6)
  - Intentional drug misuse [Unknown]
  - Myoclonus [Recovered/Resolved]
  - Pneumonia [Unknown]
  - Renal failure chronic [Unknown]
  - Hypotonia [Unknown]
  - Pyrexia [Unknown]
